FAERS Safety Report 5764534-X (Version None)
Quarter: 2008Q2

REPORT INFORMATION
  Report Type: 
  Country: None (occurrence: None)
  Receive Date: 20080610
  Receipt Date: 20080603
  Transmission Date: 20081010
  Serious: Yes (Life-Threatening, Other)
  Sender: FDA-Public Use
  Company Number: AT-PFIZER INC-2008044880

PATIENT
  Sex: Male
  Weight: 77 kg

DRUGS (2)
  1. CHANTIX [Suspect]
     Indication: SMOKING CESSATION THERAPY
     Route: 048
     Dates: start: 20070401, end: 20070401
  2. DRUG, UNSPECIFIED [Concomitant]

REACTIONS (5)
  - ABNORMAL BEHAVIOUR [None]
  - AGGRESSION [None]
  - FRUSTRATION [None]
  - MAJOR DEPRESSION [None]
  - SUICIDE ATTEMPT [None]
